FAERS Safety Report 5303000-2 (Version None)
Quarter: 2007Q2

REPORT INFORMATION
  Report Type: 
  Country: None (occurrence: None)
  Receive Date: 20070420
  Receipt Date: 20070412
  Transmission Date: 20071010
  Serious: Yes (Other)
  Sender: FDA-Public Use
  Company Number: US-BAYER-200616117BWH

PATIENT
  Age: 75 Year
  Sex: Female

DRUGS (6)
  1. AVELOX [Suspect]
     Indication: SINUS DISORDER
     Dosage: UNIT DOSE: 400 MG
     Route: 048
     Dates: start: 20060101, end: 20060101
  2. AVELOX [Suspect]
     Route: 048
     Dates: start: 20060101
  3. COREG [Concomitant]
     Route: 048
     Dates: start: 20060101
  4. BUMETANIDE [Concomitant]
     Route: 048
     Dates: start: 20060101
  5. NORVASC [Concomitant]
     Route: 048
     Dates: start: 20060101
  6. LIPITOR [Concomitant]
     Route: 048
     Dates: start: 20060101

REACTIONS (2)
  - CARDIAC FAILURE CONGESTIVE [None]
  - DYSPNOEA [None]
